FAERS Safety Report 24698677 (Version 1)
Quarter: 2024Q4

REPORT INFORMATION
  Report Type: Spontaneous
  Country: GR (occurrence: GR)
  Receive Date: 20241204
  Receipt Date: 20241204
  Transmission Date: 20250115
  Serious: Yes (Other)
  Sender: PFIZER
  Company Number: GR-PFIZER INC-202400313308

PATIENT
  Age: 25 Year
  Sex: Male

DRUGS (1)
  1. CLINDAMYCIN [Suspect]
     Active Substance: CLINDAMYCIN
     Indication: Sinusitis
     Dosage: 300 MG, 2X/DAY (MORNING AND EVENING)
     Dates: start: 20241015

REACTIONS (4)
  - Diaphragmatic disorder [Unknown]
  - Diarrhoea [Not Recovered/Not Resolved]
  - Faeces discoloured [Not Recovered/Not Resolved]
  - Off label use [Unknown]

NARRATIVE: CASE EVENT DATE: 20240101
